FAERS Safety Report 11750288 (Version 1)
Quarter: 2015Q4

REPORT INFORMATION
  Report Type: Spontaneous
  Country: FR (occurrence: FR)
  Receive Date: 20151118
  Receipt Date: 20151118
  Transmission Date: 20160304
  Serious: Yes (Death)
  Sender: FDA-Public Use
  Company Number: FR-SA-2015SA184380

PATIENT
  Age: 74 Year
  Sex: Female
  Weight: 60 kg

DRUGS (5)
  1. ONDANSETRON [Concomitant]
     Active Substance: ONDANSETRON
     Indication: PREMEDICATION
     Route: 042
     Dates: start: 20151106, end: 20151106
  2. LEVOFOLINATE DE CALCIUM ZENTIVA [Suspect]
     Active Substance: LEVOLEUCOVORIN CALCIUM
     Indication: OESOPHAGEAL CARCINOMA
     Route: 042
     Dates: start: 20151106, end: 20151106
  3. EMEND [Suspect]
     Active Substance: APREPITANT
     Indication: PREMEDICATION
     Route: 048
     Dates: start: 20151106, end: 20151106
  4. OXALIPLATIN. [Suspect]
     Active Substance: OXALIPLATIN
     Indication: OESOPHAGEAL CARCINOMA
     Route: 042
     Dates: start: 20151106, end: 20151106
  5. METHYLPREDNISOLONE. [Concomitant]
     Active Substance: METHYLPREDNISOLONE
     Indication: PREMEDICATION
     Route: 042
     Dates: start: 20151106, end: 20151106

REACTIONS (1)
  - Cardio-respiratory arrest [Fatal]

NARRATIVE: CASE EVENT DATE: 20151106
